FAERS Safety Report 14879019 (Version 1)
Quarter: 2018Q2

REPORT INFORMATION
  Report Type: Spontaneous
  Country: FR (occurrence: FR)
  Receive Date: 20180511
  Receipt Date: 20180511
  Transmission Date: 20180711
  Serious: Yes (Other)
  Sender: FDA-Public Use
  Company Number: FR-MERCK KGAA-2047602

PATIENT
  Age: 52 Year
  Sex: Female

DRUGS (2)
  1. NOVOTHYROX [Suspect]
     Active Substance: LEVOTHYROXINE SODIUM
     Indication: POST PROCEDURAL HYPOTHYROIDISM
  2. LEVOTHYROX NF [Suspect]
     Active Substance: LEVOTHYROXINE SODIUM

REACTIONS (32)
  - Abdominal discomfort [None]
  - Mean cell volume decreased [None]
  - Serum ferritin decreased [None]
  - Depression [None]
  - Pain in extremity [None]
  - Hot flush [None]
  - Malaise [None]
  - Amnesia [None]
  - Asthenia [None]
  - Alopecia [None]
  - Irritability [None]
  - Hyperthyroidism [None]
  - Dizziness [None]
  - Apathy [None]
  - Lymphocyte count decreased [None]
  - Muscle spasms [None]
  - Nausea [None]
  - Hypothyroidism [None]
  - Aphasia [None]
  - Headache [None]
  - Haemoglobin decreased [None]
  - Haematocrit decreased [None]
  - Mean cell haemoglobin decreased [None]
  - Dyspnoea [None]
  - Insomnia [None]
  - Mood swings [None]
  - Blood thyroid stimulating hormone decreased [Recovered/Resolved]
  - Dysstasia [None]
  - Stress [None]
  - Marital problem [None]
  - Loss of personal independence in daily activities [None]
  - Palpitations [None]

NARRATIVE: CASE EVENT DATE: 201704
